FAERS Safety Report 5917962-3 (Version None)
Quarter: 2008Q4

REPORT INFORMATION
  Report Type: 
  Country: None (occurrence: None)
  Receive Date: 20081014
  Receipt Date: 20081004
  Transmission Date: 20090506
  Serious: Yes (Other)
  Sender: FDA-Public Use
  Company Number: BR-PFIZER INC-2008044144

PATIENT
  Sex: Female

DRUGS (4)
  1. FRONTAL XR [Suspect]
     Route: 048
  2. TOLVON [Concomitant]
     Route: 048
  3. REMERON [Concomitant]
     Route: 048
  4. SEROQUEL [Concomitant]
     Route: 048

REACTIONS (4)
  - ANGER [None]
  - DEMENTIA [None]
  - SOMNOLENCE [None]
  - WRONG TECHNIQUE IN DRUG USAGE PROCESS [None]
